FAERS Safety Report 20065233 (Version 5)
Quarter: 2022Q1

REPORT INFORMATION
  Report Type: Report from Study
  Country: US (occurrence: US)
  Receive Date: 20211113
  Receipt Date: 20220208
  Transmission Date: 20220423
  Serious: Yes (Hospitalization, Other)
  Sender: FDA-Public Use
  Company Number: US-NOVARTISPH-NVSC2021US254702

PATIENT
  Sex: Male

DRUGS (3)
  1. ENTRESTO [Suspect]
     Active Substance: SACUBITRIL\VALSARTAN
     Indication: Product used for unknown indication
     Dosage: 50 MG, BID
     Route: 048
     Dates: start: 20211024
  2. COREG [Concomitant]
     Active Substance: CARVEDILOL
     Indication: Cardiac disorder
     Dosage: 25 MG
     Route: 065
  3. ALDACTONE [Concomitant]
     Active Substance: SPIRONOLACTONE
     Indication: Cardiac disorder
     Dosage: UNK
     Route: 065

REACTIONS (23)
  - Pneumonia [Unknown]
  - Lung neoplasm malignant [Unknown]
  - Arteriosclerosis coronary artery [Unknown]
  - Hypothyroidism [Unknown]
  - Malignant melanoma [Unknown]
  - Chronic left ventricular failure [Unknown]
  - Mitral valve incompetence [Unknown]
  - Cardiomyopathy [Unknown]
  - Acute respiratory failure [Unknown]
  - Hypoxia [Unknown]
  - Sepsis [Unknown]
  - Ill-defined disorder [Unknown]
  - Dyspnoea [Recovered/Resolved]
  - Bronchial neoplasm [Unknown]
  - Hypovolaemia [Unknown]
  - Bundle branch block left [Unknown]
  - Ejection fraction decreased [Unknown]
  - Nicotine dependence [Unknown]
  - Essential hypertension [Unknown]
  - Pyrexia [Unknown]
  - Hyperlipidaemia [Unknown]
  - Hypotension [Unknown]
  - Pneumothorax [Recovering/Resolving]
